FAERS Safety Report 19980268 (Version 1)
Quarter: 2021Q4

REPORT INFORMATION
  Report Type: Report from Study
  Country: US (occurrence: US)
  Receive Date: 20211021
  Receipt Date: 20211021
  Transmission Date: 20220303
  Serious: Yes (Death, Hospitalization)
  Sender: FDA-Public Use
  Company Number: US-BAYER-2021A230585

PATIENT
  Age: 67 Year
  Sex: Male

DRUGS (1)
  1. STIVARGA [Suspect]
     Active Substance: REGORAFENIB
     Indication: Colorectal cancer
     Dosage: DAILY DOSE 120 MG FOR 1-21 DAYS , 7 DAYS REST
     Dates: start: 20210820, end: 20211013

REACTIONS (3)
  - Sepsis [Fatal]
  - Pulmonary embolism [Fatal]
  - Off label use [None]

NARRATIVE: CASE EVENT DATE: 20210820
